FAERS Safety Report 11429626 (Version 1)
Quarter: 2015Q3

REPORT INFORMATION
  Report Type: Spontaneous
  Country: US (occurrence: US)
  Receive Date: 20150828
  Receipt Date: 20150828
  Transmission Date: 20151125
  Serious: No
  Sender: FDA-Public Use
  Company Number: US-ROCHE-1239230

PATIENT
  Age: 36 Year
  Sex: Male

DRUGS (2)
  1. PEGASYS [Suspect]
     Active Substance: PEGINTERFERON ALFA-2A
     Indication: CHRONIC HEPATITIS C
     Route: 058
     Dates: start: 20130607
  2. RIBAVIRIN. [Suspect]
     Active Substance: RIBAVIRIN
     Indication: CHRONIC HEPATITIS C
     Route: 048
     Dates: start: 20130607

REACTIONS (5)
  - Cough [Unknown]
  - Dysphagia [Unknown]
  - Malaise [Unknown]
  - Pyrexia [Unknown]
  - Sneezing [Unknown]

NARRATIVE: CASE EVENT DATE: 20130615
